FAERS Safety Report 15677672 (Version 6)
Quarter: 2020Q3

REPORT INFORMATION
  Report Type: Report from Study
  Country: CA (occurrence: CA)
  Receive Date: 20181130
  Receipt Date: 20200804
  Transmission Date: 20201102
  Serious: Yes (Death, Life-Threatening, Hospitalization, Disabling, Other)
  Sender: FDA-Public Use
  Company Number: PHHY2018CA123090

PATIENT
  Age: 76 Year
  Sex: Female

DRUGS (13)
  1. ELIQUIS [Concomitant]
     Active Substance: APIXABAN
     Indication: PRODUCT USED FOR UNKNOWN INDICATION
     Dosage: 10 MG, UNK
     Route: 048
     Dates: start: 20160907, end: 20180409
  2. DIGOXIN. [Concomitant]
     Active Substance: DIGOXIN
     Indication: PRODUCT USED FOR UNKNOWN INDICATION
     Dosage: 0.125 MG, UNK
     Route: 048
     Dates: start: 20161027, end: 20180822
  3. ENTRESTO [Suspect]
     Active Substance: SACUBITRIL\VALSARTAN
     Indication: CARDIAC FAILURE
     Dosage: 2 DF (24 MG SACUBITRIL/26 MG VALSARTAN), UNK
     Route: 048
     Dates: start: 20170501, end: 20170522
  4. AMIODARONE [Concomitant]
     Active Substance: AMIODARONE
     Indication: PRODUCT USED FOR UNKNOWN INDICATION
     Dosage: 150 MG, UNK
     Route: 042
     Dates: start: 20180822, end: 20180822
  5. EZETROL [Concomitant]
     Active Substance: EZETIMIBE
     Indication: PRODUCT USED FOR UNKNOWN INDICATION
     Dosage: 10 MG, UNK
     Route: 048
     Dates: start: 20140916
  6. AMIODARONE [Concomitant]
     Active Substance: AMIODARONE
     Dosage: 450 MG, UNK
     Route: 042
     Dates: start: 20180822, end: 20180822
  7. AMIODARONE [Concomitant]
     Active Substance: AMIODARONE
     Dosage: 450 MG, UNK
     Route: 042
     Dates: start: 20180822, end: 20180822
  8. METOPROLOL. [Concomitant]
     Active Substance: METOPROLOL
     Indication: PRODUCT USED FOR UNKNOWN INDICATION
     Dosage: 100 MG, UNK
     Route: 048
     Dates: start: 20180822
  9. FUROSEMIDE. [Concomitant]
     Active Substance: FUROSEMIDE
     Indication: PRODUCT USED FOR UNKNOWN INDICATION
     Dosage: 40 MG, UNK
     Route: 048
     Dates: start: 20160907
  10. ENTRESTO [Suspect]
     Active Substance: SACUBITRIL\VALSARTAN
     Dosage: 2 DF  (49 MG SACUBITRIL/51 MG VALSARTAN), UNK
     Route: 048
     Dates: start: 20170523
  11. BISOPROLOL [Concomitant]
     Active Substance: BISOPROLOL
     Indication: PRODUCT USED FOR UNKNOWN INDICATION
     Dosage: 10 MG, UNK
     Route: 048
     Dates: start: 20140916, end: 20180822
  12. ATORVASTATIN [Concomitant]
     Active Substance: ATORVASTATIN
     Indication: PRODUCT USED FOR UNKNOWN INDICATION
     Dosage: 80 MG, UNK
     Route: 048
     Dates: start: 20140916
  13. SPIRONOLACTONE. [Concomitant]
     Active Substance: SPIRONOLACTONE
     Indication: PRODUCT USED FOR UNKNOWN INDICATION
     Dosage: 25 MG, UNK
     Route: 048
     Dates: start: 20160907

REACTIONS (13)
  - Breast cancer metastatic [Fatal]
  - Chest pain [Recovered/Resolved]
  - Pneumonia [Unknown]
  - Ventricular tachycardia [Not Recovered/Not Resolved]
  - Dyspnoea [Unknown]
  - Urge incontinence [Unknown]
  - Haematuria [Not Recovered/Not Resolved]
  - Concomitant disease aggravated [Unknown]
  - Chest pain [Unknown]
  - Blood glucose decreased [Unknown]
  - Atrial fibrillation [Unknown]
  - Generalised anxiety disorder [Unknown]
  - Urinary tract infection [Unknown]

NARRATIVE: CASE EVENT DATE: 20170814
